FAERS Safety Report 10916262 (Version 2)
Quarter: 2015Q2

REPORT INFORMATION
  Report Type: Report from Study
  Country: US (occurrence: US)
  Receive Date: 20150316
  Receipt Date: 20150406
  Transmission Date: 20150821
  Serious: Yes (Hospitalization)
  Sender: FDA-Public Use
  Company Number: US-009507513-1503USA005403

PATIENT
  Age: 59 Year
  Sex: Male
  Weight: 110.2 kg

DRUGS (8)
  1. XGEVA [Concomitant]
     Active Substance: DENOSUMAB
     Dosage: 120 MG, UNDER THE SKIN ONE TIME
     Route: 058
  2. UBIDECARENONE [Concomitant]
     Active Substance: UBIDECARENONE
     Dosage: DOSE: UNKNOWN, FREQUENCY: QD
  3. XANAX [Concomitant]
     Active Substance: ALPRAZOLAM
     Dosage: 1 TABLET 3 TIMES DAILY AND 1/2 AT NIGHT
     Route: 048
  4. PULMICORT TURBUHALER [Concomitant]
     Active Substance: BUDESONIDE
     Dosage: UNK
  5. DEXILANT [Concomitant]
     Active Substance: DEXLANSOPRAZOLE
     Dosage: 60 MG, 2 TIMES A DAY
     Route: 048
  6. PROVENTIL [Concomitant]
     Active Substance: ALBUTEROL
     Indication: DYSPNOEA
     Dosage: 2 PUFFS  EVERY 4 TO 6 HOURS AS NEEDED
     Route: 055
  7. PEMBROLIZUMAB. [Suspect]
     Active Substance: PEMBROLIZUMAB
     Indication: ADENOCARCINOMA
     Dosage: 200 MG, Q3W
     Route: 042
     Dates: start: 20150206, end: 20150309
  8. ASPIRIN. [Concomitant]
     Active Substance: ASPIRIN
     Dosage: 1 DF, QD
     Route: 048

REACTIONS (1)
  - Influenza [Unknown]

NARRATIVE: CASE EVENT DATE: 20150303
